FAERS Safety Report 7457386-3 (Version None)
Quarter: 2011Q2

REPORT INFORMATION
  Report Type: 
  Country: None (occurrence: None)
  Receive Date: 20110504
  Receipt Date: 20100628
  Transmission Date: 20111010
  Serious: Yes (Other)
  Sender: FDA-Public Use
  Company Number: US-SANOFI-AVENTIS-2010SA037784

PATIENT
  Age: 55 Year
  Sex: Female

DRUGS (1)
  1. APIDRA [Suspect]
     Dosage: VIA PUMP
     Route: 058
     Dates: start: 20090901

REACTIONS (4)
  - WEIGHT LOSS POOR [None]
  - WEIGHT INCREASED [None]
  - HYPOGLYCAEMIA [None]
  - BLOOD GLUCOSE INCREASED [None]
